FAERS Safety Report 18547889 (Version 1)
Quarter: 2020Q4

REPORT INFORMATION
  Report Type: Spontaneous
  Country: US (occurrence: US)
  Receive Date: 20201126
  Receipt Date: 20201126
  Transmission Date: 20210114
  Serious: Yes (Other)
  Sender: FDA-Public Use
  Company Number: US-REGENERON PHARMACEUTICALS, INC.-2020-89709

PATIENT

DRUGS (3)
  1. EYLEA [Suspect]
     Active Substance: AFLIBERCEPT
     Dosage: EVERY 6 WEEKS IN THE RIGHT EYE ONLY
     Route: 031
     Dates: start: 202009, end: 202009
  2. EYLEA [Suspect]
     Active Substance: AFLIBERCEPT
     Indication: EYE HAEMORRHAGE
     Dosage: EVERY 6 WEEKS IN THE RIGHT EYE ONLY
     Route: 031
     Dates: start: 20200818, end: 20200818
  3. EYLEA [Suspect]
     Active Substance: AFLIBERCEPT
     Indication: RETINAL OEDEMA
     Dosage: EVERY 6 WEEKS IN THE RIGHT EYE ONLY
     Route: 031
     Dates: start: 2018

REACTIONS (2)
  - Gallbladder cancer [Unknown]
  - Off label use [Unknown]

NARRATIVE: CASE EVENT DATE: 20201012
